FAERS Safety Report 21520311 (Version 11)
Quarter: 2025Q1

REPORT INFORMATION
  Report Type: Spontaneous
  Country: US (occurrence: US)
  Receive Date: 20221028
  Receipt Date: 20250123
  Transmission Date: 20250408
  Serious: No
  Sender: PFIZER
  Company Number: US-PFIZER INC-PV202200077928

PATIENT
  Age: 75 Year
  Sex: Female
  Weight: 79.365 kg

DRUGS (15)
  1. LORBRENA [Suspect]
     Active Substance: LORLATINIB
     Indication: Brain neoplasm
     Dates: start: 202201
  2. LORBRENA [Suspect]
     Active Substance: LORLATINIB
     Indication: Non-small cell lung cancer recurrent
     Dosage: 75 MG, 1X/DAY
     Route: 048
     Dates: start: 20220301
  3. LORBRENA [Suspect]
     Active Substance: LORLATINIB
     Route: 048
  4. LORBRENA [Suspect]
     Active Substance: LORLATINIB
     Dosage: (3 TABLET OF 25MG STRENGTH BY MOUTH BED TIME)
     Route: 048
  5. ALPRAZOLAM [Concomitant]
     Active Substance: ALPRAZOLAM
  6. ATORVASTATIN [Concomitant]
     Active Substance: ATORVASTATIN
     Indication: Blood cholesterol abnormal
  7. CITALOPRAM [Concomitant]
     Active Substance: CITALOPRAM
  8. ESZOPICLONE [Concomitant]
     Active Substance: ESZOPICLONE
  9. LISINOPRIL [Concomitant]
     Active Substance: LISINOPRIL
     Indication: Blood pressure abnormal
  10. VITAMIN B12 [Concomitant]
     Active Substance: CYANOCOBALAMIN
  11. SENNA LAXATIVE [Concomitant]
     Active Substance: SENNOSIDES
  12. ZYRTEC [Concomitant]
     Active Substance: CETIRIZINE HYDROCHLORIDE
  13. MIRTAZAPINE [Concomitant]
     Active Substance: MIRTAZAPINE
     Indication: Depression
     Dosage: UNK, 1X/DAY (ONCE AT BEDTIME)
  14. MIRTAZAPINE [Concomitant]
     Active Substance: MIRTAZAPINE
     Indication: Insomnia
  15. LUNESTA [Concomitant]
     Active Substance: ESZOPICLONE
     Indication: Sleep disorder

REACTIONS (9)
  - Aphasia [Not Recovered/Not Resolved]
  - Amnesia [Not Recovered/Not Resolved]
  - Cognitive disorder [Unknown]
  - Hot flush [Not Recovered/Not Resolved]
  - Oedema [Unknown]
  - Peripheral swelling [Unknown]
  - Paraesthesia [Unknown]
  - Burning sensation [Unknown]
  - Insomnia [Unknown]

NARRATIVE: CASE EVENT DATE: 20220301
